FAERS Safety Report 10160735 (Version 2)
Quarter: 2014Q2

REPORT INFORMATION
  Report Type: Spontaneous
  Country: US (occurrence: US)
  Receive Date: 20140508
  Receipt Date: 20140515
  Transmission Date: 20141212
  Serious: Yes (Other)
  Sender: FDA-Public Use
  Company Number: US-PERRIGO-14US004626

PATIENT
  Age: 6 Month
  Sex: Female

DRUGS (3)
  1. POLYETHYLENE GLYCOL 3350 RX 17G 7A6 [Suspect]
     Indication: CONSTIPATION
     Dosage: 1 TO 2 TSP, QD
     Route: 048
     Dates: start: 201209, end: 201309
  2. POLYETHYLENE GLYCOL 3350 RX 17G 7A6 [Suspect]
     Indication: RECTAL HAEMORRHAGE
  3. POLY-VI-SOL                        /00200301/ [Concomitant]
     Indication: SUPPLEMENTATION THERAPY
     Dosage: UNK
     Route: 048
     Dates: start: 2012

REACTIONS (5)
  - Autism [Not Recovered/Not Resolved]
  - Mood altered [Recovered/Resolved]
  - Off label use [Recovered/Resolved]
  - Incorrect drug administration duration [Recovered/Resolved]
  - Drug ineffective [Unknown]
